FAERS Safety Report 4557940-2 (Version None)
Quarter: 2005Q1

REPORT INFORMATION
  Report Type: 
  Country: None (occurrence: None)
  Receive Date: 20050121
  Receipt Date: 20040223
  Transmission Date: 20050727
  Serious: No
  Sender: FDA-Public Use
  Company Number: US-BRISTOL-MYERS SQUIBB COMPANY-12514394

PATIENT
  Age: 74 Year
  Sex: Female

DRUGS (12)
  1. SERZONE [Suspect]
     Route: 048
     Dates: start: 19990101, end: 20020211
  2. PHENYLFENESIN LA [Concomitant]
  3. BENZONATATE [Concomitant]
  4. MECLIZINE [Concomitant]
  5. PRILOSEC [Concomitant]
  6. CARISOPRODOL [Concomitant]
  7. PROPOXYPHENE [Concomitant]
  8. AMITRIPTYLINE [Concomitant]
  9. XANAX [Concomitant]
  10. DESAMETASONE [Concomitant]
  11. HALCION [Concomitant]
  12. LORTAB [Concomitant]

REACTIONS (1)
  - ALANINE AMINOTRANSFERASE INCREASED [None]
